FAERS Safety Report 4691124-2 (Version None)
Quarter: 2005Q2

REPORT INFORMATION
  Report Type: 
  Country: None (occurrence: None)
  Receive Date: 20050610
  Receipt Date: 20050601
  Transmission Date: 20051028
  Serious: Yes (Hospitalization)
  Sender: FDA-Public Use
  Company Number: 2005AL002113

PATIENT
  Age: 73 Year
  Sex: Female

DRUGS (11)
  1. SERAX [Suspect]
     Dosage: 50 MG
     Dates: end: 20050426
  2. DALFAGAN     (PARACETAMOL) ({NULL}) [Suspect]
     Dosage: 500 MG; PRN; PO
     Route: 048
     Dates: end: 20050426
  3. IMOVANE [Suspect]
     Dosage: 7.5 MG; PO
     Route: 048
     Dates: end: 20050426
  4. PLAVIX [Concomitant]
  5. OMEPRAZOLE [Concomitant]
  6. EUTHYROX [Concomitant]
  7. RISPERDAL [Concomitant]
  8. SODIUM BICARBONATE [Concomitant]
  9. POTASSIUM CHLORIDE [Concomitant]
  10. SODIUM SULFATE [Concomitant]
  11. MACROGOL [Concomitant]

REACTIONS (4)
  - DRUG ABUSER [None]
  - HEPATOCELLULAR DAMAGE [None]
  - LIVER DISORDER [None]
  - SOMNOLENCE [None]
